FAERS Safety Report 5372737-1 (Version None)
Quarter: 2007Q2

REPORT INFORMATION
  Report Type: 
  Country: None (occurrence: None)
  Receive Date: 20070627
  Receipt Date: 20070615
  Transmission Date: 20071010
  Serious: Yes (Other)
  Sender: FDA-Public Use
  Company Number: DE-PFIZER INC-2007029554

PATIENT
  Age: 64 Year
  Sex: Male
  Weight: 140 kg

DRUGS (9)
  1. CARDULAR [Suspect]
     Indication: HYPERTENSION
     Route: 048
  2. NORVASC [Suspect]
     Route: 048
  3. TORREM [Suspect]
  4. AMLODIPINE [Suspect]
  5. KARVEZIDE [Suspect]
  6. KARVEA [Suspect]
  7. ANTIHYPERTENSIVES [Concomitant]
  8. RENACOR [Concomitant]
  9. ALL OTHER THERAPEUTIC PRODUCTS [Concomitant]
     Dates: start: 20040101

REACTIONS (2)
  - MACULOPATHY [None]
  - WEIGHT INCREASED [None]
